FAERS Safety Report 9985338 (Version 1)
Quarter: 2014Q1

REPORT INFORMATION
  Report Type: Report from Study
  Country: US (occurrence: US)
  Receive Date: 20140307
  Receipt Date: 20140307
  Transmission Date: 20141002
  Serious: No
  Sender: FDA-Public Use
  Company Number: US-ABBVIE-13P-163-1185230-00

PATIENT
  Age: 63 Year
  Sex: Female
  Weight: 90.8 kg

DRUGS (4)
  1. HUMIRA [Suspect]
     Indication: CROHN^S DISEASE
     Dates: start: 20131118, end: 20131118
  2. HUMIRA [Suspect]
     Dates: start: 20131202, end: 20131202
  3. HUMIRA [Suspect]
     Dates: start: 20131216
  4. PREDNISONE [Suspect]
     Indication: CROHN^S DISEASE

REACTIONS (5)
  - Local swelling [Not Recovered/Not Resolved]
  - Injection site bruising [Recovered/Resolved]
  - Chest discomfort [Not Recovered/Not Resolved]
  - Injection site haemorrhage [Recovered/Resolved]
  - Dyspnoea [Not Recovered/Not Resolved]
